FAERS Safety Report 7162424-1 (Version None)
Quarter: 2010Q4

REPORT INFORMATION
  Report Type: 
  Country: None (occurrence: None)
  Receive Date: 20101215
  Receipt Date: 20091030
  Transmission Date: 20110411
  Serious: Yes (Other)
  Sender: FDA-Public Use
  Company Number: GB-PFIZER INC-2005088873

PATIENT
  Age: 34 Year
  Sex: Female
  Weight: 80 kg

DRUGS (6)
  1. LYRICA [Suspect]
     Indication: NEURALGIA
     Route: 048
     Dates: start: 20050301, end: 20050520
  2. PROZAC [Concomitant]
     Route: 048
  3. CARBAMAZEPINE [Concomitant]
     Indication: NEURALGIA
     Dosage: 400 MG, 3X/DAY
     Route: 048
  4. GABAPENTIN [Concomitant]
     Route: 048
  5. CO-DYDRAMOL [Concomitant]
     Route: 048
  6. DIHYDROCODEINE BITARTRATE INJ [Concomitant]
     Route: 065

REACTIONS (2)
  - DEPRESSION [None]
  - OVERDOSE [None]
